FAERS Safety Report 6123514-5 (Version None)
Quarter: 2009Q1

REPORT INFORMATION
  Report Type: 
  Country: None (occurrence: None)
  Receive Date: 20090318
  Receipt Date: 20090305
  Transmission Date: 20090719
  Serious: Yes (Other)
  Sender: FDA-Public Use
  Company Number: CH-JNJCH-2009007271

PATIENT
  Age: 12 Year
  Sex: Female

DRUGS (1)
  1. CETIRIZINE HYDROCHLORIDE [Suspect]
     Indication: DRUG USE FOR UNKNOWN INDICATION
     Dosage: TEXT:20 GTT
     Route: 048
     Dates: start: 20090202, end: 20090205

REACTIONS (3)
  - HAEMATURIA [None]
  - JAUNDICE [None]
  - LIVER INJURY [None]
